FAERS Safety Report 8132650-3 (Version None)
Quarter: 2012Q1

REPORT INFORMATION
  Report Type: 
  Country: None (occurrence: None)
  Receive Date: 20120213
  Receipt Date: 20120206
  Transmission Date: 20120608
  Serious: Yes (Hospitalization, Congenital Anomaly)
  Sender: FDA-Public Use
  Company Number: GB-GLAXOSMITHKLINE-B0775046A

PATIENT
  Age: 0 Year
  Sex: Female
  Weight: 2.05 kg

DRUGS (1)
  1. MALARONE [Suspect]
     Route: 064

REACTIONS (6)
  - NOSE DEFORMITY [None]
  - INFLAMMATION [None]
  - PREMATURE BABY [None]
  - SKIN NECROSIS [None]
  - SKIN LESION [None]
  - NASAL ULCER [None]
